FAERS Safety Report 5995107-1 (Version None)
Quarter: 2008Q4

REPORT INFORMATION
  Report Type: 
  Country: None (occurrence: None)
  Receive Date: 20081212
  Receipt Date: 20081208
  Transmission Date: 20090506
  Serious: Yes (Hospitalization)
  Sender: FDA-Public Use
  Company Number: US-PFIZER INC-2008015036

PATIENT
  Sex: Male
  Weight: 83.46 kg

DRUGS (12)
  1. CELECOXIB;IBUPROFEN|NAPROXEN;PLACEBO [Suspect]
     Indication: OSTEOARTHRITIS
     Route: 048
     Dates: start: 20071215, end: 20080114
  2. NEXIUM [Concomitant]
     Dosage: QD
     Route: 048
     Dates: start: 20071213
  3. AMLODIPINE [Concomitant]
     Dosage: QD
     Route: 048
     Dates: start: 19990101
  4. TOPROL-XL [Concomitant]
     Dosage: BID
     Route: 048
     Dates: start: 19990101
  5. PRAVACHOL [Concomitant]
     Dosage: QHS
     Route: 048
     Dates: start: 19990101
  6. ALTACE [Concomitant]
     Dosage: QD
     Route: 048
     Dates: start: 19990101
  7. NITROGLYCERIN [Concomitant]
     Dosage: PRN
     Route: 048
     Dates: start: 19990101
  8. ASPIRIN [Concomitant]
     Route: 048
     Dates: start: 19990101, end: 20080208
  9. LOVENOX [Concomitant]
     Dosage: BID
     Route: 058
     Dates: start: 20080125, end: 20080208
  10. LORTAB [Concomitant]
     Dosage: PRN
     Route: 048
     Dates: start: 20080124
  11. VITAMIN E [Concomitant]
     Dosage: QD
     Route: 048
     Dates: start: 19990101
  12. MULTI-VITAMINS [Concomitant]
     Dosage: 1 TAB,QD
     Route: 048
     Dates: start: 19990101

REACTIONS (1)
  - INFECTION [None]
